FAERS Safety Report 17499771 (Version 1)
Quarter: 2020Q1

REPORT INFORMATION
  Report Type: Spontaneous
  Country: US (occurrence: US)
  Receive Date: 20200305
  Receipt Date: 20200305
  Transmission Date: 20200409
  Serious: Yes (Hospitalization, Other)
  Sender: FDA-Public Use
  Company Number: US-GLAXOSMITHKLINE-US2020GSK038919

PATIENT
  Sex: Female

DRUGS (1)
  1. VARUBI [Suspect]
     Active Substance: ROLAPITANT
     Indication: UTERINE CANCER
     Dosage: 2 DF (180 MG BY MOUTH 1-2 HOURS PRIOR TO CHEMO EVERY 3 WEEKS)
     Route: 048

REACTIONS (1)
  - Thrombosis [Unknown]
